FAERS Safety Report 7371383-8 (Version None)
Quarter: 2011Q1

REPORT INFORMATION
  Report Type: 
  Country: None (occurrence: None)
  Receive Date: 20110322
  Receipt Date: 20110322
  Transmission Date: 20110831
  Serious: Yes (Other)
  Sender: FDA-Public Use
  Company Number: None

PATIENT
  Age: 55 Year
  Sex: Female
  Weight: 56.6996 kg

DRUGS (3)
  1. EFFEXOR XR [Suspect]
     Indication: PAIN
     Dosage: 1 CAPSULW 1-2 TIMES PER DAY PO
     Route: 048
     Dates: start: 20010101, end: 20100323
  2. EFFEXOR XR [Suspect]
     Indication: GENERALISED ANXIETY DISORDER
     Dosage: 1 CAPSULW 1-2 TIMES PER DAY PO
     Route: 048
     Dates: start: 20010101, end: 20100323
  3. EFFEXOR XR [Suspect]
     Indication: DEPRESSION
     Dosage: 1 CAPSULW 1-2 TIMES PER DAY PO
     Route: 048
     Dates: start: 20010101, end: 20100323

REACTIONS (9)
  - CYSTITIS NONINFECTIVE [None]
  - PURPURA [None]
  - INFLAMMATION [None]
  - HYPERSENSITIVITY [None]
  - KELOID SCAR [None]
  - PETECHIAE [None]
  - DERMATITIS [None]
  - COAGULOPATHY [None]
  - RESPIRATORY TRACT INFLAMMATION [None]
